FAERS Safety Report 8991451 (Version 5)
Quarter: 2013Q3

REPORT INFORMATION
  Report Type: Report from Study
  Country: CA (occurrence: CA)
  Receive Date: 20121231
  Receipt Date: 20130930
  Transmission Date: 20140515
  Serious: Yes (Other)
  Sender: FDA-Public Use
  Company Number: CA-ROCHE-1172449

PATIENT
  Age: 66 Year
  Sex: Female
  Weight: 64.92 kg

DRUGS (4)
  1. OMALIZUMAB [Suspect]
     Indication: ASTHMA
     Dosage: EXPIRY DATE: /JAN/2012
     Route: 058
     Dates: start: 20080415
  2. OMALIZUMAB [Suspect]
     Dosage: Q4W
     Route: 058
     Dates: start: 20090423
  3. OMALIZUMAB [Suspect]
     Route: 065
     Dates: start: 20121129
  4. OMALIZUMAB [Suspect]
     Route: 042
     Dates: start: 20130328

REACTIONS (17)
  - Aspergillus infection [Unknown]
  - Tachycardia [Unknown]
  - Secretion discharge [Recovered/Resolved]
  - Lung infiltration [Recovered/Resolved]
  - Productive cough [Unknown]
  - Dysphonia [Unknown]
  - Cough [Unknown]
  - Sputum discoloured [Unknown]
  - Hypertension [Unknown]
  - Bronchitis [Unknown]
  - Hot flush [Unknown]
  - Dyspnoea [Unknown]
  - Throat irritation [Unknown]
  - Hyperhidrosis [Unknown]
  - Fatigue [Unknown]
  - Pyrexia [Unknown]
  - Gastrointestinal disorder [Unknown]
